FAERS Safety Report 9428464 (Version 1)
Quarter: 2013Q3

REPORT INFORMATION
  Report Type: Spontaneous
  Country: US (occurrence: US)
  Receive Date: 20130730
  Receipt Date: 20130730
  Transmission Date: 20140515
  Serious: No
  Sender: FDA-Public Use
  Company Number: US-ABBOTT-13P-163-1034928-00

PATIENT
  Age: 45 Year
  Sex: Male
  Weight: 79.45 kg

DRUGS (1)
  1. NIASPAN (COATED) [Suspect]
     Indication: BLOOD CHOLESTEROL INCREASED
     Route: 048
     Dates: start: 201210, end: 20121121

REACTIONS (2)
  - Dizziness [Recovered/Resolved]
  - Flushing [Recovered/Resolved]
